FAERS Safety Report 7607927-8 (Version None)
Quarter: 2011Q3

REPORT INFORMATION
  Report Type: 
  Country: None (occurrence: None)
  Receive Date: 20110714
  Receipt Date: 20090930
  Transmission Date: 20111222
  Serious: Yes (Death, Other)
  Sender: FDA-Public Use
  Company Number: US-BAYER-2011-005531

PATIENT
  Age: 72 Year
  Sex: Male
  Weight: 86.168 kg

DRUGS (27)
  1. SUFENTANIL CITRATE [Concomitant]
     Route: 042
  2. MIDAZOLAM HCL [Concomitant]
     Route: 042
  3. ATIVAN [Concomitant]
     Dosage: UNK
     Route: 042
     Dates: start: 20051030
  4. TRASYLOL [Suspect]
     Dosage: 50CC/HR
     Route: 042
     Dates: start: 20051023, end: 20051023
  5. NITROGLYCERIN [Concomitant]
     Dosage: 50MG/250CC
     Route: 042
  6. LOPRESSOR [Concomitant]
  7. NITROGLYCERIN [Concomitant]
  8. PHENYLEPHRINE [PHENYLEPHRINE] [Concomitant]
     Dosage: UNK
     Route: 042
  9. PROTAMINE SULFATE [Concomitant]
     Route: 042
  10. PLATELETS [Concomitant]
     Dosage: 275 ML, UNK
     Route: 042
     Dates: start: 20051023
  11. RED BLOOD CELLS [Concomitant]
     Dosage: 1 U, UNK
     Dates: start: 20051023
  12. HYDRALAZINE HCL [Concomitant]
     Dosage: UNK
     Route: 042
     Dates: start: 20051025
  13. ZOSYN [Concomitant]
     Dosage: UNK
     Route: 042
     Dates: start: 20051027
  14. LASIX [Concomitant]
     Dosage: UNK
     Route: 042
     Dates: start: 20051026
  15. LEVAQUIN [Concomitant]
     Dosage: UNK
     Route: 042
     Dates: start: 20051027
  16. VANCOMYCIN [Concomitant]
     Route: 042
  17. PROPOFOL [Concomitant]
     Route: 042
  18. TRASYLOL [Suspect]
     Indication: CORONARY ARTERY BYPASS
     Dosage: 200CC
     Route: 042
     Dates: start: 20051023, end: 20051023
  19. MANNITOL [Concomitant]
     Route: 042
  20. PANCURONIUM [Concomitant]
     Route: 042
  21. HEPARIN [Concomitant]
     Dosage: UNK
     Route: 042
  22. LIDOCAINE [Concomitant]
     Dosage: UNK
     Route: 042
  23. DOPAMINE HCL [Concomitant]
     Dosage: 400MG/250CC
     Route: 042
  24. MILRINONE [Concomitant]
     Dosage: 20MG/100CC
     Route: 042
  25. INSULIN [INSULIN] [Concomitant]
  26. DILAUDID [Concomitant]
     Dosage: UNK
     Route: 042
     Dates: start: 20051024
  27. PHENYLEPHRINE HCL [Concomitant]
     Route: 042

REACTIONS (21)
  - ANXIETY [None]
  - UNEVALUABLE EVENT [None]
  - PSYCHIATRIC SYMPTOM [None]
  - RENAL FAILURE [None]
  - STRESS [None]
  - NERVOUSNESS [None]
  - FEAR OF DEATH [None]
  - ANHEDONIA [None]
  - PAIN [None]
  - RENAL INJURY [None]
  - CARDIAC FAILURE [None]
  - RENAL DISORDER [None]
  - RENAL IMPAIRMENT [None]
  - DEPRESSION [None]
  - DEATH [None]
  - EMOTIONAL DISTRESS [None]
  - MULTI-ORGAN FAILURE [None]
  - INJURY [None]
  - SHOCK [None]
  - ISCHAEMIC STROKE [None]
  - FEAR [None]
